FAERS Safety Report 9680650 (Version 1)
Quarter: 2013Q4

REPORT INFORMATION
  Report Type: Spontaneous
  Country: US (occurrence: US)
  Receive Date: 20131111
  Receipt Date: 20131111
  Transmission Date: 20140711
  Serious: No
  Sender: FDA-Public Use
  Company Number: US-PFIZER INC-2013320771

PATIENT
  Sex: Female

DRUGS (5)
  1. LYRICA [Suspect]
     Indication: FIBROMYALGIA
     Dosage: 50 MG, 1X/DAY
     Route: 048
  2. LYRICA [Suspect]
     Dosage: 75 MG, 1X/DAY
     Route: 048
  3. LYRICA [Suspect]
     Dosage: 100 MG (BY TAKING ONE 75 MG AND ONE 25 MG CAPSULE), 1X/DAY
     Route: 048
  4. LYRICA [Suspect]
     Dosage: 125 MG (BY TAKING ONE 75 MG CAPSULE AND TWO 25 MG CAPSULES), 1X/DAY
     Route: 048
  5. LYRICA [Suspect]
     Dosage: 100 MG (BY TAKING ONE 75 MG CAPSULE AND ONE 25 MG CAPSULE), 1X/DAY
     Route: 048

REACTIONS (1)
  - Somnolence [Recovered/Resolved]
